FAERS Safety Report 11537844 (Version 1)
Quarter: 2015Q3

REPORT INFORMATION
  Report Type: Spontaneous
  Country: AU (occurrence: AU)
  Receive Date: 20150922
  Receipt Date: 20150922
  Transmission Date: 20151125
  Serious: Yes (Other)
  Sender: FDA-Public Use
  Company Number: PHHY2015AU112823

PATIENT
  Age: 23 Month
  Sex: Male

DRUGS (1)
  1. ENOXAPARIN [Suspect]
     Active Substance: ENOXAPARIN
     Indication: THROMBOSIS
     Route: 065

REACTIONS (4)
  - Drug effect incomplete [Unknown]
  - Intracranial venous sinus thrombosis [Unknown]
  - Ventricular hypertrophy [Unknown]
  - Cerebral haemorrhage [Unknown]
